FAERS Safety Report 13134192 (Version 6)
Quarter: 2019Q3

REPORT INFORMATION
  Report Type: Spontaneous
  Country: US (occurrence: US)
  Receive Date: 20170120
  Receipt Date: 20190813
  Transmission Date: 20191004
  Serious: Yes (Hospitalization, Other)
  Sender: FDA-Public Use
  Company Number: US-PFIZER INC-2017024030

PATIENT
  Age: 64 Year
  Sex: Female
  Weight: 68 kg

DRUGS (9)
  1. RAPAMUNE [Suspect]
     Active Substance: SIROLIMUS
     Indication: RENAL TRANSPLANT
     Dosage: 4 MG (TWO PILLS ), DAILY
     Route: 048
     Dates: start: 1982
  2. RAPAMUNE [Suspect]
     Active Substance: SIROLIMUS
     Indication: IMMUNOSUPPRESSANT DRUG LEVEL DECREASED
     Dosage: 4 MG (TWO TABLETS), DAILY
     Route: 048
     Dates: start: 1982
  3. RAPAMUNE [Suspect]
     Active Substance: SIROLIMUS
     Dosage: 2 MG, 2X/DAY
  4. RAPAMUNE [Suspect]
     Active Substance: SIROLIMUS
     Dosage: 2 MG, 2X/DAY (2MG, ONE TABLET BY MOUTH TWICE DAILY)
     Route: 048
     Dates: start: 1982
  5. RAPAMUNE [Suspect]
     Active Substance: SIROLIMUS
     Dosage: 1 DF, 2X/DAY
     Route: 048
  6. PREDNISONE. [Concomitant]
     Active Substance: PREDNISONE
     Indication: RENAL TRANSPLANT
     Dosage: 5 MG, 1X/DAY
  7. GLIPIZIDE. [Concomitant]
     Active Substance: GLIPIZIDE
     Dosage: 2.5 MG, 1X/DAY
  8. ZOLOFT [Concomitant]
     Active Substance: SERTRALINE HYDROCHLORIDE
     Dosage: 50 MG, 1X/DAY
  9. GABAPENTIN. [Concomitant]
     Active Substance: GABAPENTIN
     Dosage: 300 MG, 1X/DAY

REACTIONS (12)
  - Cerebrovascular accident [Recovered/Resolved with Sequelae]
  - Nasopharyngitis [Unknown]
  - Ulnar nerve injury [Recovering/Resolving]
  - Fall [Unknown]
  - Wrist fracture [Recovered/Resolved with Sequelae]
  - Body height decreased [Unknown]
  - Memory impairment [Recovering/Resolving]
  - Balance disorder [Not Recovered/Not Resolved]
  - Product dose omission [Not Recovered/Not Resolved]
  - Weight fluctuation [Unknown]
  - Spinal osteoarthritis [Unknown]
  - Dysgraphia [Not Recovered/Not Resolved]

NARRATIVE: CASE EVENT DATE: 2015
